FAERS Safety Report 7780704-3 (Version None)
Quarter: 2011Q3

REPORT INFORMATION
  Report Type: 
  Country: None (occurrence: None)
  Receive Date: 20110927
  Receipt Date: 20110503
  Transmission Date: 20111222
  Serious: No
  Sender: FDA-Public Use
  Company Number: US-BRISTOL-MYERS SQUIBB COMPANY-15659626

PATIENT
  Age: 58 Year
  Sex: Female

DRUGS (3)
  1. SYNTHROID [Concomitant]
  2. AVAPRO [Suspect]
     Dosage: 1 DF=300 UNITS NOT SPECIFIED AUTHORIZATION NUMBER:20-757
     Dates: start: 20110101
  3. HYDROCHLOROTHIAZIDE [Suspect]
     Dates: start: 20110101

REACTIONS (1)
  - HYPERTENSION [None]
